FAERS Safety Report 4544291-5 (Version None)
Quarter: 2004Q4

REPORT INFORMATION
  Report Type: 
  Country: None (occurrence: None)
  Receive Date: 20041230
  Receipt Date: 20041215
  Transmission Date: 20050328
  Serious: Yes (Death, Hospitalization)
  Sender: FDA-Public Use
  Company Number: DSA_25509_2004

PATIENT
  Age: 86 Year
  Sex: Female

DRUGS (6)
  1. ENALAPRIL MALEATE AND HYDROCHLOROTHIAZIDE [Suspect]
     Indication: HYPERTENSION
     Dosage: 1 TAB Q DAY PO
     Route: 048
     Dates: start: 20040726, end: 20040823
  2. LITHIUM CARBONATE [Suspect]
     Indication: CYCLOTHYMIC DISORDER
     Dosage: 375 MG Q DAY PO
     Route: 048
     Dates: end: 20040823
  3. LERCANIDIPINE [Concomitant]
  4. OMEPRAZOLE [Concomitant]
  5. PIRIBEDIL [Concomitant]
  6. ZOPICLONE [Concomitant]

REACTIONS (13)
  - APHASIA [None]
  - CONFUSIONAL STATE [None]
  - DEPRESSED LEVEL OF CONSCIOUSNESS [None]
  - DRUG INTERACTION [None]
  - DYSARTHRIA [None]
  - EXTRAPYRAMIDAL DISORDER [None]
  - GENERAL PHYSICAL HEALTH DETERIORATION [None]
  - HEART RATE DECREASED [None]
  - HEMIPARESIS [None]
  - PROTEIN TOTAL INCREASED [None]
  - RENAL FAILURE [None]
  - SOMNOLENCE [None]
  - THERAPEUTIC AGENT TOXICITY [None]
